FAERS Safety Report 8048502-3 (Version None)
Quarter: 2012Q1

REPORT INFORMATION
  Report Type: 
  Country: None (occurrence: None)
  Receive Date: 20120110
  Receipt Date: 20111229
  Transmission Date: 20120608
  Serious: Yes (Hospitalization)
  Sender: FDA-Public Use
  Company Number: 2012030693

PATIENT
  Sex: Female

DRUGS (1)
  1. HIZENTRA [Suspect]
     Dosage: (8 G 1X/WEEK SUBCUTANEOUS)
     Route: 058
     Dates: start: 20110201, end: 20111208

REACTIONS (6)
  - FATIGUE [None]
  - CONSTIPATION [None]
  - CHANGE OF BOWEL HABIT [None]
  - ABDOMINAL PAIN LOWER [None]
  - HEADACHE [None]
  - URINARY TRACT INFECTION [None]
